FAERS Safety Report 4366192-8 (Version None)
Quarter: 2004Q2

REPORT INFORMATION
  Report Type: 
  Country: None (occurrence: None)
  Receive Date: 20040524
  Receipt Date: 20040510
  Transmission Date: 20050107
  Serious: Yes (Other)
  Sender: FDA-Public Use
  Company Number: 2004031482

PATIENT
  Age: 70 Year
  Sex: Male

DRUGS (9)
  1. VIAGRA [Suspect]
     Indication: ILL-DEFINED DISORDER
     Dosage: 50 MG (1 IN 1 D) ORAL
     Route: 048
  2. NIFEDIPINE [Suspect]
     Indication: ILL-DEFINED DISORDER
     Dosage: 30 MG (1 IN 1 D) ORAL
     Route: 048
  3. ACETYLSALICYLIC ACID SRT [Concomitant]
  4. DOXAZOSIN MESYLATE [Concomitant]
  5. GLYBURIDE [Concomitant]
  6. METFORMIN HCL [Concomitant]
  7. BUDESONIDE (BUDESONIDE) [Concomitant]
  8. SALBUTAMOL (SALBUTAMOL) [Concomitant]
  9. SIMVASTATIN [Concomitant]

REACTIONS (4)
  - DIZZINESS [None]
  - DRUG INTERACTION [None]
  - NAUSEA [None]
  - VOMITING [None]
